FAERS Safety Report 7911590-6 (Version None)
Quarter: 2011Q4

REPORT INFORMATION
  Report Type: 
  Country: None (occurrence: None)
  Receive Date: 20111028
  Receipt Date: 20110124
  Transmission Date: 20120403
  Serious: Yes (Other)
  Sender: FDA-Public Use
  Company Number: PHHY2010US81811

PATIENT
  Age: 71 Year
  Sex: Female
  Weight: 61.2 kg

DRUGS (5)
  1. CLOXIDINE [Concomitant]
  2. PROVERA [Concomitant]
  3. SPIRONOLACTONE [Concomitant]
  4. VERAPAMIL [Concomitant]
  5. ESTRADERM [Suspect]
     Indication: HORMONE REPLACEMENT THERAPY
     Dosage: 0.05 MG, TRANSDERMAL
     Route: 062
     Dates: start: 20100901

REACTIONS (2)
  - DRUG INEFFECTIVE [None]
  - METRORRHAGIA [None]
